FAERS Safety Report 10402667 (Version 1)
Quarter: 2014Q3

REPORT INFORMATION
  Report Type: Spontaneous
  Country: PT (occurrence: None)
  Receive Date: 20140820
  Receipt Date: 20140820
  Transmission Date: 20150326
  Serious: Yes (Other)
  Sender: FDA-Public Use
  Company Number: FK201403297

PATIENT
  Age: 30 Year
  Sex: Female
  Weight: 95 kg

DRUGS (6)
  1. TRAMADOL LABESFAL (TRAMADOL) [Concomitant]
  2. KETOROLAC (KETOROLAC) [Concomitant]
     Active Substance: KETOROLAC TROMETHAMINE
  3. DIAZEPAM LABESFAL (DIAZEPAM) [Concomitant]
  4. METOCLOPRAMIDE LABESFAL (METOCLOPRAMIDE HYDROCHLORIDE) [Concomitant]
  5. MORFINA [Suspect]
     Active Substance: MORPHINE HYDROCHLORIDE
     Indication: RENAL COLIC
     Dosage: 3 MG, SINGLE DOSE, SUBCUTANEOUS
     Route: 058
     Dates: start: 20140728, end: 20140728
  6. BUSCOPAN (HYOSCINE BUTYLBROMIDE) (HYOSCINE BUTYLBROMIDE) [Concomitant]
     Active Substance: BUTYLSCOPOLAMINE

REACTIONS (4)
  - Local reaction [None]
  - Injection site rash [None]
  - Oral disorder [None]
  - Injection site pruritus [None]

NARRATIVE: CASE EVENT DATE: 20140728
